FAERS Safety Report 7018364-1 (Version None)
Quarter: 2010Q3

REPORT INFORMATION
  Report Type: 
  Country: None (occurrence: None)
  Receive Date: 20100924
  Receipt Date: 20100910
  Transmission Date: 20110219
  Serious: Yes (Disabling, Other)
  Sender: FDA-Public Use
  Company Number: ACO_02189_2010

PATIENT
  Age: 62 Year
  Sex: Male

DRUGS (7)
  1. AMPYRA [Suspect]
     Indication: GAIT DISTURBANCE
     Dosage: (10 MG QD ORAL), (10 MG BID ORAL)
     Route: 048
     Dates: start: 20100701, end: 20100701
  2. AMPYRA [Suspect]
     Indication: GAIT DISTURBANCE
     Dosage: (10 MG QD ORAL), (10 MG BID ORAL)
     Route: 048
     Dates: start: 20100701
  3. LEXAPRO [Concomitant]
  4. AMANTADINE [Concomitant]
  5. BACLOFEN [Concomitant]
  6. REBIF [Concomitant]
  7. ACETAMINOPHEN [Concomitant]

REACTIONS (4)
  - ACTIVITIES OF DAILY LIVING IMPAIRED [None]
  - ASTHENIA [None]
  - FATIGUE [None]
  - FEELING ABNORMAL [None]
